FAERS Safety Report 5570134-7 (Version None)
Quarter: 2007Q4

REPORT INFORMATION
  Report Type: 
  Country: None (occurrence: None)
  Receive Date: 20071217
  Receipt Date: 20071203
  Transmission Date: 20080405
  Serious: Yes (Hospitalization)
  Sender: FDA-Public Use
  Company Number: DSA_30978_2007

PATIENT
  Age: 50 Year
  Sex: Female

DRUGS (6)
  1. LORAZEPAM [Suspect]
     Dosage: (10 MG 1X NOT THE PRESCRIBED AMOUNT, ORAL; (50 MG 1X NOT THE PRESCRIBED AMOUNT. ORAL)
     Route: 048
     Dates: start: 20071202, end: 20071202
  2. LORAZEPAM [Suspect]
     Dosage: (10 MG 1X NOT THE PRESCRIBED AMOUNT, ORAL; (50 MG 1X NOT THE PRESCRIBED AMOUNT. ORAL)
     Route: 048
     Dates: start: 20071202, end: 20071202
  3. DOMINAL /00018902/ (DOMINAL FORTE - PROTHIPENDYL HYDROCHLORIDE) 40 MG [Suspect]
     Dosage: (800 MG 1X  NOT THE PRESCRIBED AMOUNT ORAL)
     Route: 048
     Dates: start: 20071202, end: 20071202
  4. EBASTEL (EBASTEL - EBASTINE) 10 MG (NOT SPECIFIED) [Suspect]
     Dosage: (100 MG 1X NOT THE PRESCRIBED AMOUNT, ORAL)
     Route: 048
     Dates: start: 20071202, end: 20071202
  5. MEGACILLIN /00001802/ (MEGACILLIN - PHENOXYMETHYLPENICILLIN POTASSIUM) [Suspect]
     Dosage: (27 DF 1X NOT THE PRESCRIBED AMOUNT, ORAL)
     Route: 048
     Dates: start: 20071202, end: 20071202
  6. TAVEGIL /00137201/ (TAVEGIL - CLEMASTINE) 1 MG (NOT SPECIFIED) [Suspect]
     Dosage: (20 MG 1X NOT THE PRESCRIBED AMOUNT, ORAL)
     Route: 048
     Dates: start: 20071202, end: 20071202

REACTIONS (4)
  - COMA [None]
  - HYPOTONIA [None]
  - MULTIPLE DRUG OVERDOSE INTENTIONAL [None]
  - SUICIDE ATTEMPT [None]
